FAERS Safety Report 24205352 (Version 3)
Quarter: 2024Q4

REPORT INFORMATION
  Report Type: Spontaneous
  Country: ES (occurrence: ES)
  Receive Date: 20240813
  Receipt Date: 20241212
  Transmission Date: 20250115
  Serious: Yes (Other)
  Sender: AEGERION
  Company Number: ES-AMRYT PHARMACEUTICALS DAC-AEGR006519

PATIENT

DRUGS (13)
  1. METRELEPTIN [Suspect]
     Active Substance: METRELEPTIN
     Indication: Congenital generalised lipodystrophy
     Dosage: 0.08 MILLIGRAM/KILOGRAM, QD
     Dates: start: 20100211
  2. METRELEPTIN [Suspect]
     Active Substance: METRELEPTIN
     Dosage: 10 MILLIGRAM, QD
  3. METFORMIN [Concomitant]
     Active Substance: METFORMIN HYDROCHLORIDE
     Indication: Diabetes mellitus
     Dosage: 850 MILLIGRAM, TID
     Route: 048
  4. GLIMEPIRIDE [Concomitant]
     Active Substance: GLIMEPIRIDE
     Indication: Diabetes mellitus
     Dosage: 8 MILLIGRAM, QD
     Route: 048
     Dates: end: 20090522
  5. ROSIGLITAZONE [Concomitant]
     Active Substance: ROSIGLITAZONE
     Indication: Diabetes mellitus
     Dosage: 4 MILLIGRAM, BID
     Route: 048
     Dates: end: 20080728
  6. FENOFIBRATE [Concomitant]
     Active Substance: FENOFIBRATE
     Indication: Hypertriglyceridaemia
     Dosage: 160 MILLIGRAM, QD
     Route: 048
     Dates: end: 20130914
  7. INSULIN GLARGINE [Concomitant]
     Active Substance: INSULIN GLARGINE
     Indication: Diabetes mellitus
     Dosage: 12 INTERNATIONAL UNIT, QD
     Route: 058
     Dates: start: 20080728
  8. INSULIN ASPART [Concomitant]
     Active Substance: INSULIN ASPART
     Indication: Diabetes mellitus
     Dosage: NOVO MIX 30, FLEX PEN, 55 INTERNATIONAL UNIT, BID
     Route: 058
     Dates: start: 20090522, end: 20240529
  9. INSULIN GLULISINE [Concomitant]
     Active Substance: INSULIN GLULISINE
     Indication: Diabetes mellitus
     Dosage: 20 INTERNATIONAL UNIT, TID
     Route: 058
     Dates: start: 20230529
  10. PIOGLITAZONE [Concomitant]
     Active Substance: PIOGLITAZONE
     Indication: Diabetes mellitus
     Dosage: 30 MILLIGRAM, QD
     Route: 048
     Dates: start: 20191202
  11. BISOPROLOL [Concomitant]
     Active Substance: BISOPROLOL
     Indication: Hypertension
     Dosage: 2.5 MILLIGRAM, QD
     Route: 048
     Dates: start: 20160428
  12. DELAPRIL [Concomitant]
     Active Substance: DELAPRIL
     Indication: Hypertension
     Dosage: 30 MILLIGRAM, QD
     Route: 048
     Dates: start: 20220511
  13. MANIDIPINE [Concomitant]
     Active Substance: MANIDIPINE
     Indication: Hypertension
     Dosage: 10 MILLIGRAM, QD
     Route: 048
     Dates: start: 20220511

REACTIONS (10)
  - Diabetes mellitus [Unknown]
  - Leptin level decreased [Unknown]
  - Hepatic steatosis [Unknown]
  - Steatohepatitis [Unknown]
  - Hepatomegaly [Unknown]
  - Splenomegaly [Unknown]
  - Kidney enlargement [Unknown]
  - Insulin resistance [Unknown]
  - Hypertriglyceridaemia [Unknown]
  - Drug ineffective [Unknown]
